FAERS Safety Report 9009739 (Version 1)
Quarter: 2013Q1

REPORT INFORMATION
  Report Type: Spontaneous
  Country: US (occurrence: US)
  Receive Date: 20130112
  Receipt Date: 20130112
  Transmission Date: 20140127
  Serious: Yes (Hospitalization, Other)
  Sender: FDA-Public Use
  Company Number: US-009507513-1301USA001618

PATIENT
  Age: 19 Year
  Sex: Male

DRUGS (8)
  1. MONTELUKAST SODIUM [Suspect]
     Dosage: 20 MG, UNKNOWN
  2. LANSOPRAZOLE [Suspect]
     Dosage: 20 MG, (QHS)
  3. CROMOLYN SODIUM [Suspect]
     Dosage: 20 MG, UNKNOWN
  4. ALBUTEROL [Suspect]
     Dosage: 8 PUF, QID
     Route: 055
  5. SALMETEROL [Suspect]
     Dosage: 4 PUF (BID), IH
     Route: 055
  6. PAROXETINE HCL [Suspect]
     Dosage: 20 MG, UNKNOWN
  7. LITHIUM CARBONATE [Suspect]
     Dosage: 300 MG, UNKNOWN
  8. BUDESONIDE [Suspect]
     Dosage: 4 PUF (BID), IH
     Route: 055

REACTIONS (5)
  - Speech disorder [Unknown]
  - Serotonin syndrome [Unknown]
  - Grand mal convulsion [Unknown]
  - Drug interaction [Unknown]
  - Drug abuser [Unknown]
